FAERS Safety Report 16249292 (Version 1)
Quarter: 2019Q2

REPORT INFORMATION
  Report Type: Spontaneous
  Country: DE (occurrence: DE)
  Receive Date: 20190429
  Receipt Date: 20190429
  Transmission Date: 20190711
  Serious: Yes (Death, Other)
  Sender: FDA-Public Use
  Company Number: DE-BRISTOL-MYERS SQUIBB COMPANY-BMS-2019-040599

PATIENT
  Age: 47 Year
  Sex: Male
  Weight: 79 kg

DRUGS (9)
  1. TRAMETINIB [Suspect]
     Active Substance: TRAMETINIB
     Indication: METASTATIC MALIGNANT MELANOMA
     Dosage: 2 MILLIGRAM, QD
     Route: 048
     Dates: start: 20170512, end: 20180518
  2. DEXAMETHASONE. [Suspect]
     Active Substance: DEXAMETHASONE
     Indication: COLITIS
     Dosage: 24 MG, QD
     Route: 048
     Dates: start: 20180612, end: 20180701
  3. NIVOLUMAB [Suspect]
     Active Substance: NIVOLUMAB
     Indication: MALIGNANT MELANOMA
     Dosage: 80 MG, QMO
     Route: 042
     Dates: start: 20180524, end: 20180525
  4. TAFINLAR [Suspect]
     Active Substance: DABRAFENIB MESYLATE
     Indication: PRODUCT USED FOR UNKNOWN INDICATION
     Dosage: 150 MILLIGRAM, BID
     Route: 048
     Dates: start: 20180616, end: 20180923
  5. ZELBORAF [Concomitant]
     Active Substance: VEMURAFENIB
     Indication: MALIGNANT MELANOMA
     Dosage: 240 MILLIGRAM, QD
     Route: 048
     Dates: start: 20180924
  6. IPILIMUMAB [Suspect]
     Active Substance: IPILIMUMAB
     Indication: MALIGNANT MELANOMA
     Dosage: 240 MG, QMO
     Route: 042
     Dates: start: 20180524, end: 20180525
  7. TRAMETINIB [Suspect]
     Active Substance: TRAMETINIB
     Indication: PRODUCT USED FOR UNKNOWN INDICATION
     Dosage: 2 MILLIGRAM, QD
     Route: 048
     Dates: start: 20180616, end: 20180923
  8. TAFINLAR [Suspect]
     Active Substance: DABRAFENIB MESYLATE
     Indication: METASTATIC MALIGNANT MELANOMA
     Dosage: 150 MILLIGRAM, BID
     Route: 048
     Dates: start: 20170512, end: 20180518
  9. COTELLIC [Concomitant]
     Active Substance: COBIMETINIB
     Indication: MALIGNANT MELANOMA
     Dosage: 20 MILLIGRAM, TID
     Route: 048
     Dates: start: 20180924

REACTIONS (3)
  - Malignant neoplasm progression [Fatal]
  - Autoimmune colitis [Fatal]
  - Condition aggravated [Fatal]

NARRATIVE: CASE EVENT DATE: 20180612
